FAERS Safety Report 16656178 (Version 5)
Quarter: 2020Q4

REPORT INFORMATION
  Report Type: Spontaneous
  Country: US (occurrence: US)
  Receive Date: 20190801
  Receipt Date: 20201125
  Transmission Date: 20210113
  Serious: Yes (Other)
  Sender: FDA-Public Use
  Company Number: US-PFIZER INC-2019328736

PATIENT
  Age: 29 Year
  Sex: Female
  Weight: 61.23 kg

DRUGS (4)
  1. PHENOBARBITAL. [Concomitant]
     Active Substance: PHENOBARBITAL
     Dosage: 92.5 MG, DAILY (32.5MG BY MOUTH IN AM AND 60MG IN PM )
     Route: 048
     Dates: start: 198509
  2. DILANTIN [Suspect]
     Active Substance: PHENYTOIN
     Indication: SEIZURE
     Dosage: 300 MG, DAILY (100 MG IN THE AM AND 200 MG AT PM/1 CAPSULE IN THE MORNING AND 2 CAPSULES IN THE EVEN
     Route: 048
     Dates: start: 198509
  3. DILANTIN [Suspect]
     Active Substance: PHENYTOIN
     Indication: EPILEPSY
  4. PHENOBARBITAL. [Concomitant]
     Active Substance: PHENOBARBITAL
     Indication: SEIZURE
     Dosage: 97.5 MG, DAILY (1 TABLET IN THE AM AND 2 TABLETS IN THE PM)
     Dates: start: 198509

REACTIONS (5)
  - Abortion spontaneous [Unknown]
  - Pain in extremity [Not Recovered/Not Resolved]
  - Maternal exposure during pregnancy [Unknown]
  - Plantar fascial fibromatosis [Recovered/Resolved]
  - Plantar fascial fibromatosis [Not Recovered/Not Resolved]

NARRATIVE: CASE EVENT DATE: 19951223
